FAERS Safety Report 26040215 (Version 1)
Quarter: 2025Q4

REPORT INFORMATION
  Report Type: Spontaneous
  Country: EU (occurrence: EU)
  Receive Date: 20251113
  Receipt Date: 20251113
  Transmission Date: 20260118
  Serious: Yes (Other)
  Sender: RANBAXY
  Company Number: EU-AFSSAPS-AVLY2025000131

PATIENT
  Age: 37 Year
  Sex: Male

DRUGS (4)
  1. SILDENAFIL [Suspect]
     Active Substance: SILDENAFIL
     Indication: Product used for unknown indication
     Dosage: NOT SPECIFIED
     Route: 065
     Dates: start: 202503, end: 202503
  2. COCAINE [Suspect]
     Active Substance: COCAINE
     Indication: Product used for unknown indication
     Dosage: NOT SPECIFIED
     Route: 065
     Dates: start: 202503, end: 202503
  3. MIDOMAFETAMINE [Suspect]
     Active Substance: MIDOMAFETAMINE
     Indication: Product used for unknown indication
     Dosage: NOT SPECIFIED
     Route: 065
     Dates: start: 202503, end: 202503
  4. BUTYROLACTONE [Suspect]
     Active Substance: BUTYROLACTONE
     Indication: Product used for unknown indication
     Dosage: NOT SPECIFIED
     Route: 065
     Dates: start: 202503, end: 202503

REACTIONS (5)
  - Substance abuse [Unknown]
  - Intentional product misuse [Unknown]
  - Behaviour disorder [Recovered/Resolved]
  - Psychomotor hyperactivity [Recovered/Resolved]
  - Mydriasis [Recovered/Resolved]

NARRATIVE: CASE EVENT DATE: 20250301
